FAERS Safety Report 9419521 (Version 1)
Quarter: 2013Q3

REPORT INFORMATION
  Report Type: Spontaneous
  Country: US (occurrence: None)
  Receive Date: 20130723
  Receipt Date: 20130723
  Transmission Date: 20140515
  Serious: Yes (Death, Hospitalization, Other)
  Sender: FDA-Public Use
  Company Number: 7223868

PATIENT
  Age: 48 Year
  Sex: Male

DRUGS (9)
  1. LEVOTHYROXINE (LEVOTHYROXINE) [Suspect]
     Indication: PRODUCT USED FOR UNKNOWN INDICATION
     Route: 048
  2. METHADONE (METHADONE) [Suspect]
     Indication: PAIN
     Route: 048
  3. HYDROMORPHONE (HYDRPMORPHONE) [Concomitant]
  4. ALPRAZOLAM (ALPRAZOLAM) [Concomitant]
  5. POTASSIUM CHLORIDE (POTASSIUM CHLORIDE) [Concomitant]
  6. FLUOXETINE (FLUOXETINE) [Concomitant]
  7. ONDANSETRON (ONDANSETRON) [Concomitant]
  8. LIDOCAINE W/ NYSTATIN (LIDOCAINE W/ NYSTATIN) [Concomitant]
  9. DEXAMETHASONE (DEXAMETHASONE) [Concomitant]

REACTIONS (6)
  - Laryngeal cancer [None]
  - Depressed level of consciousness [None]
  - Breakthrough pain [None]
  - Restlessness [None]
  - Cellulitis [None]
  - Toxicity to various agents [None]
